FAERS Safety Report 7455750-X (Version None)
Quarter: 2011Q2

REPORT INFORMATION
  Report Type: 
  Country: None (occurrence: None)
  Receive Date: 20110503
  Receipt Date: 20110121
  Transmission Date: 20111010
  Serious: Yes (Other)
  Sender: FDA-Public Use
  Company Number: PHHY2011US05215

PATIENT
  Sex: Male

DRUGS (6)
  1. RITUXAN [Concomitant]
     Dosage: 1000 MG, UNK
     Route: 042
  2. METFORMIN HYDROCHLORIDE [Concomitant]
     Dosage: 1000 MG, BID
  3. NORVASC [Concomitant]
     Dosage: 5 MG, UNK
  4. PLAQUENIL [Concomitant]
     Dosage: 200 MG, BID
  5. RECLAST [Suspect]
     Dosage: 5 MG, UNK
     Route: 042
     Dates: start: 20101216
  6. ZOCOR [Concomitant]
     Dosage: 40 MG, QD

REACTIONS (3)
  - CONFUSIONAL STATE [None]
  - DISORIENTATION [None]
  - SOMNOLENCE [None]
